FAERS Safety Report 8416316-8 (Version None)
Quarter: 2012Q2

REPORT INFORMATION
  Report Type: 
  Country: None (occurrence: None)
  Receive Date: 20120323
  Receipt Date: 20110805
  Transmission Date: 20120825
  Serious: Yes (Hospitalization, Other)
  Sender: FDA-Public Use
  Company Number: 163-21880-11080866

PATIENT
  Age: 80 Year
  Sex: Female
  Weight: 51.2565 kg

DRUGS (2)
  1. REVLIMID [Suspect]
     Indication: MYELODYSPLASTIC SYNDROME
     Dosage: 10 MG, DAILY, 3 WEEKS ON, 1 WEEK OFF, PO ; 10 MG, DAILY, 3 WEEKS ON, 1 WEEK OFF, PO
     Route: 048
     Dates: start: 20110802, end: 20110801
  2. REVLIMID [Suspect]
     Indication: MYELODYSPLASTIC SYNDROME
     Dosage: 10 MG, DAILY, 3 WEEKS ON, 1 WEEK OFF, PO ; 10 MG, DAILY, 3 WEEKS ON, 1 WEEK OFF, PO
     Route: 048
     Dates: start: 20110618, end: 20110720

REACTIONS (2)
  - HAEMOGLOBIN DECREASED [None]
  - CELLULITIS [None]
